FAERS Safety Report 15455524 (Version 2)
Quarter: 2018Q4

REPORT INFORMATION
  Report Type: Report from Study
  Country: CA (occurrence: CA)
  Receive Date: 20181002
  Receipt Date: 20181226
  Transmission Date: 20190204
  Serious: Yes (Hospitalization)
  Sender: FDA-Public Use
  Company Number: CA-GLAXOSMITHKLINE-CA2018133945

PATIENT
  Sex: Female

DRUGS (13)
  1. DICLOFENAC [Suspect]
     Active Substance: DICLOFENAC
     Indication: CHRONIC SPONTANEOUS URTICARIA
     Dosage: 100 MG, UNK
     Route: 048
     Dates: start: 20140321, end: 20140327
  2. FENTANYL SANDOZ [Suspect]
     Active Substance: FENTANYL
     Indication: PRODUCT USED FOR UNKNOWN INDICATION
     Dosage: 1 DF, UNK
     Route: 065
  3. MIRTAZAPINE SANDOZ [Suspect]
     Active Substance: MIRTAZAPINE
     Indication: PRODUCT USED FOR UNKNOWN INDICATION
     Dosage: 1 DF, QD
     Route: 048
     Dates: start: 20150520
  4. REACTINE [Concomitant]
     Indication: PRODUCT USED FOR UNKNOWN INDICATION
     Dosage: UNK UNK, QD
     Route: 065
     Dates: end: 2017
  5. CLARITYNE [Concomitant]
     Active Substance: LORATADINE
     Indication: PRODUCT USED FOR UNKNOWN INDICATION
     Dosage: UNK UNK, QD
     Route: 065
  6. CICLOSPORIN [Concomitant]
     Active Substance: CYCLOSPORINE
     Indication: CHRONIC SPONTANEOUS URTICARIA
     Dosage: 1 DF, QD
     Route: 048
     Dates: start: 20140319
  7. AZITHROMYCIN SANDOZ [Suspect]
     Active Substance: AZITHROMYCIN ANHYDROUS
     Indication: INFECTION
     Dosage: 2 DF, UNK
     Route: 048
     Dates: start: 20180115, end: 20180119
  8. XOLAIR [Suspect]
     Active Substance: OMALIZUMAB
     Indication: CHRONIC SPONTANEOUS URTICARIA
     Dosage: 300 MG, EVERY 4 WEEKS
     Route: 058
     Dates: start: 20180828
  9. PREDNISONE. [Concomitant]
     Active Substance: PREDNISONE
     Indication: PRODUCT USED FOR UNKNOWN INDICATION
     Dosage: UNK UNK, QD
     Route: 065
     Dates: start: 20180628, end: 20180703
  10. ATARAX [Concomitant]
     Active Substance: HYDROXYZINE HYDROCHLORIDE
     Indication: PRODUCT USED FOR UNKNOWN INDICATION
     Dosage: UNK (FREQUENCY: PRN)
     Route: 065
     Dates: start: 20150317
  11. AERIUS (DESLORATADINE) [Concomitant]
     Active Substance: DESLORATADINE
     Indication: PRODUCT USED FOR UNKNOWN INDICATION
     Dosage: UNK UNK, BID
     Route: 065
     Dates: start: 20180607, end: 20180703
  12. BENADRYL [Concomitant]
     Active Substance: DIPHENHYDRAMINE HYDROCHLORIDE
     Indication: PRODUCT USED FOR UNKNOWN INDICATION
     Dosage: UNK UNK, QD
     Route: 065
     Dates: end: 2016
  13. HYDERM (HYDROCORTISONE ACETATE) [Concomitant]
     Indication: PRODUCT USED FOR UNKNOWN INDICATION
     Dosage: UNK (FFREQUNECY: PRN)
     Route: 061

REACTIONS (3)
  - Urticaria [Unknown]
  - Bronchitis [Unknown]
  - Rash [Unknown]
